FAERS Safety Report 4432742-6 (Version None)
Quarter: 2004Q3

REPORT INFORMATION
  Report Type: 
  Country: None (occurrence: None)
  Receive Date: 20040820
  Receipt Date: 20040727
  Transmission Date: 20050211
  Serious: Yes (Hospitalization)
  Sender: FDA-Public Use
  Company Number: JP_040703721

PATIENT
  Age: 61 Year
  Sex: Female
  Weight: 51 kg

DRUGS (8)
  1. ZYPREXA [Suspect]
     Indication: SCHIZOPHRENIA
     Dosage: 10 MG DAY
     Dates: start: 20040628, end: 20040702
  2. RISPERDAL [Concomitant]
  3. NITRAZEPAM [Concomitant]
  4. GASMOTIN (MOSAPRIDE CITRATE) [Concomitant]
  5. FAMOTIDINE [Concomitant]
  6. ROHIPNOL (FLUNITRAZEPAM) [Concomitant]
  7. TASMOLIN (BIPERIDEN) [Concomitant]
  8. DIAZEPAM [Concomitant]

REACTIONS (3)
  - DYSPHAGIA [None]
  - NEUROLEPTIC MALIGNANT SYNDROME [None]
  - PARALYSIS [None]
